FAERS Safety Report 8850250 (Version 1)
Quarter: 2012Q4

REPORT INFORMATION
  Report Type: 
  Country: CO (occurrence: CO)
  Receive Date: 20121019
  Receipt Date: 20121019
  Transmission Date: 20130627
  Serious: Yes (Hospitalization)
  Sender: FDA-Public Use
  Company Number: CO-PFIZER INC-2012258010

PATIENT
  Sex: Female

DRUGS (1)
  1. DALACIN [Suspect]

REACTIONS (1)
  - Anaphylactic shock [Unknown]
